FAERS Safety Report 9308634 (Version 2)
Quarter: 2014Q1

REPORT INFORMATION
  Report Type: Spontaneous
  Country: US (occurrence: US)
  Receive Date: 20130524
  Receipt Date: 20140314
  Transmission Date: 20141002
  Serious: No
  Sender: FDA-Public Use
  Company Number: US-TEVA-406189USA

PATIENT
  Sex: Female
  Weight: 56.75 kg

DRUGS (1)
  1. NUVIGIL [Suspect]
     Indication: ATTENTION DEFICIT/HYPERACTIVITY DISORDER
     Dosage: 250 MILLIGRAM DAILY;
     Route: 048

REACTIONS (10)
  - Blood calcium increased [Not Recovered/Not Resolved]
  - Blood triglycerides increased [Not Recovered/Not Resolved]
  - Arthralgia [Unknown]
  - Pain in extremity [Unknown]
  - Palpitations [Unknown]
  - Arthritis [Unknown]
  - Arterial occlusive disease [Unknown]
  - Therapeutic response unexpected [Unknown]
  - Drug administration error [Unknown]
  - Off label use [Unknown]
